FAERS Safety Report 17593033 (Version 1)
Quarter: 2020Q1

REPORT INFORMATION
  Report Type: Spontaneous
  Country: US (occurrence: US)
  Receive Date: 20200327
  Receipt Date: 20200327
  Transmission Date: 20200409
  Serious: No
  Sender: FDA-Public Use
  Company Number: US-BAYER-2020-050051

PATIENT
  Sex: Male

DRUGS (2)
  1. DILANTIN [Interacting]
     Active Substance: PHENYTOIN
  2. VITRAKVI [Suspect]
     Active Substance: LAROTRECTINIB
     Indication: GLIOBLASTOMA
     Dosage: 75 MG, BID
     Route: 048

REACTIONS (2)
  - Labelled drug-drug interaction medication error [None]
  - Contraindicated product administered [None]
